FAERS Safety Report 7349581-9 (Version None)
Quarter: 2011Q1

REPORT INFORMATION
  Report Type: 
  Country: None (occurrence: None)
  Receive Date: 20110309
  Receipt Date: 20110309
  Transmission Date: 20110831
  Serious: No
  Sender: FDA-Public Use
  Company Number: None

PATIENT
  Sex: Male
  Weight: 81.6475 kg

DRUGS (1)
  1. DARVOCET-N 100 [Suspect]
     Indication: BACK PAIN
     Dosage: 4-6 HOURS
     Dates: start: 20010301

REACTIONS (1)
  - EXTRASYSTOLES [None]
